FAERS Safety Report 7041207-7 (Version None)
Quarter: 2010Q4

REPORT INFORMATION
  Report Type: 
  Country: None (occurrence: None)
  Receive Date: 20101013
  Receipt Date: 20101006
  Transmission Date: 20110411
  Serious: Yes (Other)
  Sender: FDA-Public Use
  Company Number: JP-BRISTOL-MYERS SQUIBB COMPANY-15157308

PATIENT
  Sex: Male
  Weight: 70 kg

DRUGS (1)
  1. ABILIFY [Suspect]
     Dosage: ABILIFY TABS 6 MG
     Route: 048

REACTIONS (6)
  - ABNORMAL SENSATION IN EYE [None]
  - HEADACHE [None]
  - NECK PAIN [None]
  - RASH [None]
  - VERTIGO [None]
  - WEIGHT INCREASED [None]
